FAERS Safety Report 6864119-8 (Version None)
Quarter: 2010Q3

REPORT INFORMATION
  Report Type: 
  Country: None (occurrence: None)
  Receive Date: 20100721
  Receipt Date: 20100714
  Transmission Date: 20110219
  Serious: Yes (Hospitalization, Other)
  Sender: FDA-Public Use
  Company Number: US-AMGEN-QUU424356

PATIENT
  Sex: Female

DRUGS (2)
  1. NEULASTA [Suspect]
     Indication: CHEMOTHERAPY
     Dates: start: 20100501
  2. UNSPECIFIED ANTINEOPLASTIC AGENT [Concomitant]

REACTIONS (5)
  - ARTHRALGIA [None]
  - BONE PAIN [None]
  - GLAUCOMA [None]
  - HEADACHE [None]
  - INTESTINAL OBSTRUCTION [None]
